FAERS Safety Report 24551914 (Version 1)
Quarter: 2024Q4

REPORT INFORMATION
  Report Type: Other
  Country: US (occurrence: US)
  Receive Date: 20241026
  Receipt Date: 20241026
  Transmission Date: 20250115
  Serious: Yes (Death)
  Sender: ANI
  Company Number: US-ANIPHARMA-012665

PATIENT

DRUGS (7)
  1. CYCLOPHOSPHAMIDE [Suspect]
     Active Substance: CYCLOPHOSPHAMIDE
     Indication: Chronic lymphocytic leukaemia
  2. RITUXIMAB [Concomitant]
     Active Substance: RITUXIMAB
     Indication: Chronic lymphocytic leukaemia
  3. DOXORUBICIN [Concomitant]
     Active Substance: DOXORUBICIN
     Indication: Chronic lymphocytic leukaemia
  4. BORTEZOMIB [Concomitant]
     Active Substance: BORTEZOMIB
     Indication: Chronic lymphocytic leukaemia
  5. VINCRISTINE [Concomitant]
     Active Substance: VINCRISTINE
     Indication: Chronic lymphocytic leukaemia
  6. ETOPOSIDE [Concomitant]
     Active Substance: ETOPOSIDE
     Indication: Chronic lymphocytic leukaemia
  7. PREDNISONE [Concomitant]
     Active Substance: PREDNISONE
     Indication: Chronic lymphocytic leukaemia

REACTIONS (1)
  - Drug ineffective [Fatal]
